FAERS Safety Report 13359466 (Version 1)
Quarter: 2017Q1

REPORT INFORMATION
  Report Type: Spontaneous
  Country: CH (occurrence: CH)
  Receive Date: 20170322
  Receipt Date: 20170322
  Transmission Date: 20170429
  Serious: Yes (Other)
  Sender: FDA-Public Use
  Company Number: PHHY2017CH041329

PATIENT
  Sex: Female

DRUGS (1)
  1. CO-DIOVAN [Suspect]
     Active Substance: HYDROCHLOROTHIAZIDE\VALSARTAN
     Indication: PRODUCT USED FOR UNKNOWN INDICATION
     Dosage: 1 DF, UNK
     Route: 065

REACTIONS (10)
  - Back pain [Unknown]
  - Hypersensitivity [Unknown]
  - Oedema [Unknown]
  - Peripheral swelling [Unknown]
  - Arthralgia [Unknown]
  - Dysgeusia [Unknown]
  - Dry mouth [Unknown]
  - Pain in extremity [Unknown]
  - Arrhythmia [Unknown]
  - Visual acuity reduced [Unknown]
